FAERS Safety Report 18559472 (Version 1)
Quarter: 2020Q4

REPORT INFORMATION
  Report Type: Spontaneous
  Country: US (occurrence: US)
  Receive Date: 20201130
  Receipt Date: 20201130
  Transmission Date: 20210114
  Serious: No
  Sender: FDA-Public Use
  Company Number: US-PFIZER INC-2020463204

PATIENT
  Sex: Female

DRUGS (1)
  1. LEVOXYL [Suspect]
     Active Substance: LEVOTHYROXINE SODIUM
     Dosage: 125 MG

REACTIONS (2)
  - Diastolic dysfunction [Unknown]
  - Thyroid hormones increased [Unknown]
